FAERS Safety Report 25669486 (Version 1)
Quarter: 2025Q3

REPORT INFORMATION
  Report Type: Spontaneous
  Country: US (occurrence: US)
  Receive Date: 20250812
  Receipt Date: 20250812
  Transmission Date: 20251021
  Serious: Yes (Life-Threatening, Hospitalization)
  Sender: MYLAN
  Company Number: US-MYLANLABS-2025M1066646

PATIENT
  Age: 46 Year
  Sex: Female

DRUGS (3)
  1. DEXMEDETOMIDINE HYDROCHLORIDE [Suspect]
     Active Substance: DEXMEDETOMIDINE HYDROCHLORIDE
     Indication: Sedative therapy
  2. NALOXONE [Concomitant]
     Active Substance: NALOXONE
     Indication: Product used for unknown indication
  3. FENTANYL [Concomitant]
     Active Substance: FENTANYL
     Indication: Sedative therapy

REACTIONS (4)
  - Sinus bradycardia [Recovering/Resolving]
  - Atrioventricular block second degree [Recovering/Resolving]
  - Device programming error [Unknown]
  - Incorrect dose administered by device [Unknown]
